FAERS Safety Report 9477827 (Version 1)
Quarter: 2013Q3

REPORT INFORMATION
  Report Type: Spontaneous
  Country: US (occurrence: None)
  Receive Date: 20130826
  Receipt Date: 20130826
  Transmission Date: 20140515
  Serious: Yes (Disabling)
  Sender: FDA-Public Use
  Company Number: None

PATIENT
  Age: 3 Month
  Sex: Female
  Weight: 49.9 kg

DRUGS (1)
  1. AZELASTINE [Suspect]
     Indication: RHINITIS
     Dosage: I SPRAY IN EACH NOSTRIL TWICE DAIY INHALATION
     Route: 055

REACTIONS (3)
  - Joint lock [None]
  - Gait disturbance [None]
  - Arthralgia [None]
